FAERS Safety Report 9146150 (Version 1)
Quarter: 2013Q1

REPORT INFORMATION
  Report Type: Spontaneous
  Country: US (occurrence: None)
  Receive Date: 20130221
  Receipt Date: 20130221
  Transmission Date: 20140127
  Serious: Yes (Death)
  Sender: FDA-Public Use
  Company Number: 2013-00513

PATIENT
  Age: 86 Year
  Sex: Male

DRUGS (8)
  1. METFORMIN [Suspect]
     Indication: PRODUCT USED FOR UNKNOWN INDICATION
     Dosage: UNKNOWN  (UNKNOWN, UNKNOWN) , UNKNOWN?UNKNOWN  -
  2. VERAPAMIL [Suspect]
     Indication: PRODUCT USED FOR UNKNOWN INDICATION
     Dosage: UNKNOWN  (UNKNOWN, UNKNOWN) , UNKNOWN?UNKNOWN  -
  3. PRAZOSIN [Suspect]
     Indication: PRODUCT USED FOR UNKNOWN INDICATION
     Dosage: UNKNOWN  (UNKNOWN, UNKNOWN) , UNKNOWN?UNKNOWN  -
  4. METOPROLOL [Suspect]
     Indication: PRODUCT USED FOR UNKNOWN INDICATION
     Dosage: UNKNOWN  (UNKNOWN, UNKNOWN) , UNKNOWN?UNKNOWN  -
  5. GLYBURIDE [Suspect]
     Indication: PRODUCT USED FOR UNKNOWN INDICATION
     Dosage: UNKNOWN  (UNKNOWN, UNKNOWN) , UNKNOWN?UNKNOWN  -
  6. FUROSEMIDE (UNKNOWN) [Suspect]
     Indication: PRODUCT USED FOR UNKNOWN INDICATION
     Dosage: UNKNOWN  (UNKNOWN, UNKNOWN) , UNKNOWN?UNKNOWN  -
  7. OMEPRAZOLE (UNKNOWN) [Suspect]
     Indication: PRODUCT USED FOR UNKNOWN INDICATION
     Dosage: UNKNOWN  (UNKNOWN, UNKNOWN) , UNKNOWN?UNKNOWN  -
  8. POTASSIUM CHLORIDE [Suspect]
     Indication: PRODUCT USED FOR UNKNOWN INDICATION
     Dosage: UNKNOWN  (UNKNOWN, UNKNOWN) , UNKNOWN?UNKNOWN  -

REACTIONS (1)
  - Medication error [None]
